FAERS Safety Report 5023208-3 (Version None)
Quarter: 2006Q2

REPORT INFORMATION
  Report Type: 
  Country: None (occurrence: None)
  Receive Date: 20060605
  Receipt Date: 20060522
  Transmission Date: 20061013
  Serious: Yes (Hospitalization)
  Sender: FDA-Public Use
  Company Number: PIR#0605029

PATIENT
  Age: 39 Year
  Sex: Male

DRUGS (2)
  1. CEFOTAXIME SODIUM [Suspect]
     Indication: ARTHRALGIA
     Dosage: 2 GM, 4X DAILY
  2. CEFOTAXIME SODIUM [Suspect]
     Indication: RASH
     Dosage: 2 GM, 4X DAILY

REACTIONS (4)
  - ACTIVATED PARTIAL THROMBOPLASTIN TIME PROLONGED [None]
  - NEUTROPHILIA [None]
  - RED BLOOD CELL SEDIMENTATION RATE INCREASED [None]
  - SCRATCH [None]
